FAERS Safety Report 8538645-X (Version None)
Quarter: 2012Q3

REPORT INFORMATION
  Report Type: 
  Country: None (occurrence: None)
  Receive Date: 20120713
  Receipt Date: 20120628
  Transmission Date: 20120928
  Serious: Yes (Disabling)
  Sender: FDA-Public Use
  Company Number: 2012000160

PATIENT
  Age: 54 Year
  Sex: Male
  Weight: 80 kg

DRUGS (3)
  1. ACEON [Suspect]
     Indication: ESSENTIAL HYPERTENSION
     Dosage: 5 MG, QD, ORAL, 10 MG, QD, ORAL, 5 MG, QD, ORAL
     Route: 048
     Dates: start: 20110101, end: 20120501
  2. ACEON [Suspect]
     Indication: ESSENTIAL HYPERTENSION
     Dosage: 5 MG, QD, ORAL, 10 MG, QD, ORAL, 5 MG, QD, ORAL
     Route: 048
     Dates: start: 20110501, end: 20110827
  3. ACEON [Suspect]
     Indication: ESSENTIAL HYPERTENSION
     Dosage: 5 MG, QD, ORAL, 10 MG, QD, ORAL, 5 MG, QD, ORAL
     Route: 048
     Dates: start: 20110818, end: 20110101

REACTIONS (6)
  - SYNCOPE [None]
  - PALPITATIONS [None]
  - BUNDLE BRANCH BLOCK LEFT [None]
  - VENTRICULAR EXTRASYSTOLES [None]
  - CHEST PAIN [None]
  - CHEST DISCOMFORT [None]
